FAERS Safety Report 4698280-0 (Version None)
Quarter: 2005Q2

REPORT INFORMATION
  Report Type: 
  Country: None (occurrence: None)
  Receive Date: 20050621
  Receipt Date: 20050609
  Transmission Date: 20051028
  Serious: Yes (Hospitalization, Other)
  Sender: FDA-Public Use
  Company Number: 8010820

PATIENT
  Age: 32 Year
  Sex: Male

DRUGS (3)
  1. LEVETIRACETAM [Suspect]
  2. CETIRIZINE W/ PSEUDOEPHEDRINE [Suspect]
  3. MONTELUKAST [Suspect]

REACTIONS (12)
  - AKINESIA [None]
  - CARDIAC ARREST [None]
  - CARDIAC VENTRICULAR DISORDER [None]
  - CARDIOMYOPATHY [None]
  - CREATINE PHOSPHOKINASE DECREASED [None]
  - ELECTROCARDIOGRAM QT CORRECTED INTERVAL PROLONGED [None]
  - ELECTROCARDIOGRAM T WAVE INVERSION [None]
  - MYOCARDIAL ISCHAEMIA [None]
  - TORSADE DE POINTES [None]
  - TROPONIN I INCREASED [None]
  - VENTRICULAR DYSFUNCTION [None]
  - VENTRICULAR FIBRILLATION [None]
